FAERS Safety Report 23081013 (Version 1)
Quarter: 2023Q4

REPORT INFORMATION
  Report Type: Spontaneous
  Country: CN (occurrence: CN)
  Receive Date: 20231018
  Receipt Date: 20231018
  Transmission Date: 20240110
  Serious: Yes (Life-Threatening)
  Sender: FDA-Public Use
  Company Number: CN-Merck Healthcare KGaA-2023481276

PATIENT
  Age: 70 Year
  Sex: Male
  Weight: 45 kg

DRUGS (4)
  1. ERBITUX [Suspect]
     Active Substance: CETUXIMAB
     Indication: Rectal adenocarcinoma
     Dosage: 366 MG, UNKNOWN
     Route: 041
     Dates: start: 20230923, end: 20230923
  2. ERBITUX [Suspect]
     Active Substance: CETUXIMAB
     Dosage: 366 MG, UNKNOWN
     Route: 041
     Dates: start: 20230930, end: 20230930
  3. SODIUM CHLORIDE [Concomitant]
     Active Substance: SODIUM CHLORIDE
     Indication: Product used for unknown indication
     Dosage: 400 ML, UNKNOWN
     Route: 041
     Dates: start: 20230923, end: 20230923
  4. SODIUM CHLORIDE [Concomitant]
     Active Substance: SODIUM CHLORIDE
     Dosage: 400 ML, DAILY
     Route: 041
     Dates: start: 20230930, end: 20230930

REACTIONS (1)
  - Hypomagnesaemia [Unknown]

NARRATIVE: CASE EVENT DATE: 20231008
